FAERS Safety Report 10186159 (Version 1)
Quarter: 2014Q2

REPORT INFORMATION
  Report Type: Spontaneous
  Country: US (occurrence: US)
  Receive Date: 20140521
  Receipt Date: 20140521
  Transmission Date: 20141212
  Serious: Yes (Other)
  Sender: FDA-Public Use
  Company Number: ALCN2014US002934

PATIENT
  Age: 2 Month
  Sex: Female

DRUGS (2)
  1. TETRACAINE [Suspect]
     Indication: OPHTHALMOLOGICAL EXAMINATION
     Dosage: 1 GTT, QD
     Route: 047
     Dates: start: 20140508, end: 20140508
  2. CYCLOMYDRIL [Suspect]
     Indication: OPHTHALMOLOGICAL EXAMINATION
     Dosage: 1 GTT, PRN
     Route: 047
     Dates: start: 20140508, end: 20140508

REACTIONS (2)
  - Bradycardia [Unknown]
  - Oxygen saturation decreased [Unknown]
